FAERS Safety Report 6969226-7 (Version None)
Quarter: 2010Q3

REPORT INFORMATION
  Report Type: 
  Country: None (occurrence: None)
  Receive Date: 20100907
  Receipt Date: 20100825
  Transmission Date: 20110219
  Serious: Yes (Other)
  Sender: FDA-Public Use
  Company Number: IT-PFIZER INC-2010108022

PATIENT
  Age: 77 Year
  Sex: Male

DRUGS (1)
  1. SUNITINIB MALATE [Suspect]
     Indication: METASTATIC RENAL CELL CARCINOMA
     Dosage: 50 MG, CYCLIC, ON SCHEDULE OF 4/2
     Route: 048

REACTIONS (6)
  - HYPOTHYROIDISM [None]
  - JAUNDICE [None]
  - MULTI-ORGAN FAILURE [None]
  - PLEURAL EFFUSION [None]
  - RHABDOMYOLYSIS [None]
  - THROMBOCYTOPENIA [None]
